FAERS Safety Report 8819943 (Version 1)
Quarter: 2012Q4

REPORT INFORMATION
  Report Type: 
  Country: US (occurrence: US)
  Receive Date: 20121001
  Receipt Date: 20121001
  Transmission Date: 20130627
  Serious: No
  Sender: FDA-Public Use
  Company Number: US-ASTRAZENECA-2012SE73898

PATIENT
  Age: 39 Year
  Sex: Female
  Weight: 113.4 kg

DRUGS (2)
  1. SEROQUEL [Suspect]
     Indication: BIPOLAR DISORDER
     Route: 048
     Dates: start: 2004
  2. VICODIN [Concomitant]

REACTIONS (2)
  - Streptococcal infection [Unknown]
  - Off label use [Unknown]
